FAERS Safety Report 8488869-5 (Version None)
Quarter: 2012Q3

REPORT INFORMATION
  Report Type: 
  Country: None (occurrence: None)
  Receive Date: 20120705
  Receipt Date: 20120625
  Transmission Date: 20120928
  Serious: Yes (Death, Other)
  Sender: FDA-Public Use
  Company Number: PH-ELI_LILLY_AND_COMPANY-PH201206005741

PATIENT
  Sex: Female
  Weight: 43.8 kg

DRUGS (10)
  1. ENSURE                             /06184901/ [Concomitant]
  2. MAGNESIUM OXIDE [Concomitant]
     Indication: HYPOMAGNESAEMIA
     Dosage: 250 MG, PRN
  3. GEMCITABINE HYDROCHLORIDE [Suspect]
     Indication: NON-SMALL CELL LUNG CANCER STAGE IV
     Dosage: 1600 MG, OTHER
     Dates: start: 20120209, end: 20120607
  4. TRAMADOL HYDROCHLORIDE [Concomitant]
     Indication: PAIN
     Dosage: 50 MG, EVERY 6 HRS
  5. ACETAMINOPHEN [Concomitant]
     Indication: PYREXIA
     Dosage: 500 MG, EVERY 4 HRS
  6. NECITUMUMAB (11F8) (LY3012211) [Suspect]
     Indication: NON-SMALL CELL LUNG CANCER STAGE IV
     Dosage: 800 MG, OTHER
     Dates: start: 20120209, end: 20120607
  7. CISPLATIN [Suspect]
     Indication: NON-SMALL CELL LUNG CANCER STAGE IV
     Dosage: 90 MG, OTHER
     Dates: start: 20120209
  8. METOCLOPRAMIDE [Concomitant]
     Indication: NAUSEA
     Dosage: 10 MG, TID
  9. IRON W/FOLIC ACID [Concomitant]
  10. LACTULOSE [Concomitant]
     Indication: CONSTIPATION
     Dosage: 30 MG, PRN

REACTIONS (1)
  - PYREXIA [None]
